FAERS Safety Report 11414412 (Version 2)
Quarter: 2015Q4

REPORT INFORMATION
  Report Type: Spontaneous
  Country: US (occurrence: US)
  Receive Date: 20150824
  Receipt Date: 20151103
  Transmission Date: 20160304
  Serious: No
  Sender: FDA-Public Use
  Company Number: US-ACTELION PHARMACEUTICALS US, INC.-A-US2015-122948

PATIENT
  Age: 48 Year
  Sex: Female

DRUGS (3)
  1. VALCHLOR [Suspect]
     Active Substance: MECHLORETHAMINE
     Dosage: M, W, F
     Route: 061
     Dates: start: 20151019
  2. VALCHLOR [Suspect]
     Active Substance: MECHLORETHAMINE
     Indication: MYCOSIS FUNGOIDES
     Dosage: DAILY
     Route: 061
     Dates: start: 20150724
  3. SINGULAIR [Concomitant]
     Active Substance: MONTELUKAST SODIUM
     Dosage: 10 MG, UNK

REACTIONS (4)
  - Application site pain [Recovered/Resolved]
  - Skin discolouration [Unknown]
  - Application site inflammation [Recovered/Resolved]
  - Application site pruritus [Unknown]
